FAERS Safety Report 9234654 (Version 2)
Quarter: 2013Q2

REPORT INFORMATION
  Report Type: Spontaneous
  Country: US (occurrence: US)
  Receive Date: 20130416
  Receipt Date: 20130416
  Transmission Date: 20140414
  Serious: No
  Sender: FDA-Public Use
  Company Number: US-MYLANLABS-2012S1011392

PATIENT
  Age: 24 Year
  Sex: Female
  Weight: 94 kg

DRUGS (1)
  1. FOMEPIZOLE INJECTION [Suspect]
     Indication: TOXICITY TO VARIOUS AGENTS
     Route: 042

REACTIONS (2)
  - Drug administration error [Recovered/Resolved]
  - No adverse event [Recovered/Resolved]
